FAERS Safety Report 24805957 (Version 1)
Quarter: 2025Q1

REPORT INFORMATION
  Report Type: Spontaneous
  Country: CN (occurrence: CN)
  Receive Date: 20250103
  Receipt Date: 20250103
  Transmission Date: 20250409
  Serious: Yes (Hospitalization, Other)
  Sender: PFIZER
  Company Number: CN-PFIZER INC-PV202400170066

PATIENT
  Age: 11 Year
  Sex: Male
  Weight: 28.5 kg

DRUGS (4)
  1. CYTARABINE [Suspect]
     Active Substance: CYTARABINE
     Indication: Acute lymphocytic leukaemia
     Dosage: 0.04 G, 1X/DAY
     Route: 037
     Dates: start: 20240123, end: 20240123
  2. METHOTREXATE SODIUM [Suspect]
     Active Substance: METHOTREXATE SODIUM
     Indication: Acute lymphocytic leukaemia
     Dosage: 12.5 MG, 1X/DAY
     Route: 037
     Dates: start: 20240123, end: 20240123
  3. DEXAMETHASONE SODIUM PHOSPHATE [Suspect]
     Active Substance: DEXAMETHASONE SODIUM PHOSPHATE
     Indication: Acute lymphocytic leukaemia
     Dosage: 5 MG, 1X/DAY
     Route: 037
     Dates: start: 20240123, end: 20240123
  4. PEGASPARGASE [Suspect]
     Active Substance: PEGASPARGASE
     Indication: Acute lymphocytic leukaemia
     Dosage: 1080 IU, 1X/DAY
     Route: 037
     Dates: start: 20240125, end: 20240125

REACTIONS (3)
  - Hepatic enzyme increased [Recovering/Resolving]
  - Drug-induced liver injury [Recovering/Resolving]
  - Blood pressure increased [Unknown]

NARRATIVE: CASE EVENT DATE: 20240212
